FAERS Safety Report 4264831-3 (Version None)
Quarter: 2004Q1

REPORT INFORMATION
  Report Type: 
  Country: None (occurrence: None)
  Receive Date: 20040105
  Receipt Date: 20031218
  Transmission Date: 20041129
  Serious: Yes (Other)
  Sender: FDA-Public Use
  Company Number: 200322819GDDC

PATIENT
  Age: 69 Year
  Sex: Male
  Weight: 75 kg

DRUGS (3)
  1. INDAPAMIDE [Suspect]
     Indication: ESSENTIAL HYPERTENSION
     Dosage: PO
     Dates: start: 19910101, end: 19970630
  2. SECTRAL [Concomitant]
  3. TESTOSTERONE ENANTATE (ANDROTARDYL) [Concomitant]

REACTIONS (1)
  - PERIPHERAL SENSORIMOTOR NEUROPATHY [None]
